FAERS Safety Report 4730518-3 (Version None)
Quarter: 2005Q3

REPORT INFORMATION
  Report Type: 
  Country: None (occurrence: None)
  Receive Date: 20050725
  Receipt Date: 20050215
  Transmission Date: 20060218
  Serious: No
  Sender: FDA-Public Use
  Company Number: USA050290783

PATIENT
  Age: 8 Year
  Sex: Male
  Weight: 34 kg

DRUGS (1)
  1. STRATTERA [Suspect]
     Indication: ATTENTION DEFICIT/HYPERACTIVITY DISORDER
     Dosage: 40 MG DAY
     Dates: start: 20040501

REACTIONS (5)
  - ANGER [None]
  - DRUG EFFECT DECREASED [None]
  - MOOD SWINGS [None]
  - PRURITUS [None]
  - WEIGHT DECREASED [None]
